FAERS Safety Report 15426292 (Version 5)
Quarter: 2020Q1

REPORT INFORMATION
  Report Type: Report from Study
  Country: ES (occurrence: ES)
  Receive Date: 20180925
  Receipt Date: 20200213
  Transmission Date: 20200409
  Serious: Yes (Hospitalization)
  Sender: FDA-Public Use
  Company Number: ES-SA-2018SA257829

PATIENT
  Age: 41 Year
  Sex: Female
  Weight: 83 kg

DRUGS (15)
  1. ALEMTUZUMAB [Suspect]
     Active Substance: ALEMTUZUMAB
     Indication: RELAPSING-REMITTING MULTIPLE SCLEROSIS
     Dosage: UNK, UNK
     Route: 041
     Dates: start: 20180115, end: 20180118
  2. ACYCLOVIR [ACICLOVIR] [Concomitant]
     Active Substance: ACYCLOVIR
     Dosage: 200 (NOS), Q12H
     Dates: start: 20180115, end: 20180118
  3. FAMPYRA [Concomitant]
     Active Substance: DALFAMPRIDINE
     Indication: GAIT DISTURBANCE
     Dosage: 10 EVERY 12 HOURS
     Dates: start: 20140917
  4. DEXCHLORPHENIRAMINE [Concomitant]
     Active Substance: DEXCHLORPHENIRAMINE
     Dosage: 1 DF, Q8H
     Dates: start: 20180115, end: 20180118
  5. LOETTE [Concomitant]
     Active Substance: ETHINYL ESTRADIOL\LEVONORGESTREL
     Indication: CONTRACEPTION
     Dosage: 100/200, EVERY 24 HOURS
     Route: 065
     Dates: start: 20151116
  6. ACYCLOVIR [ACICLOVIR] [Concomitant]
     Active Substance: ACYCLOVIR
     Indication: PROPHYLAXIS
     Dosage: 200 UNK, Q12H
     Route: 065
     Dates: start: 20180115, end: 20180213
  7. CONDROSAN [Concomitant]
     Indication: BONE DISORDER
     Dosage: 400 EVERY 12 HOURS
     Route: 065
     Dates: start: 20110314
  8. TARDYFERON [Concomitant]
     Active Substance: FERROUS SULFATE
     Indication: ANAEMIA OF PREGNANCY
     Dosage: 80 QD
     Route: 065
     Dates: start: 20190110, end: 20190617
  9. LIORESAL [Concomitant]
     Active Substance: BACLOFEN
     Indication: MUSCLE SPASTICITY
     Dosage: 25 MG, EVERY 8 HOURS
     Route: 065
  10. PARACETAMOL [Concomitant]
     Active Substance: ACETAMINOPHEN
     Dosage: 1 G, Q12H
     Dates: start: 20180115, end: 20180118
  11. BACLOFEN. [Concomitant]
     Active Substance: BACLOFEN
     Dosage: UNK UNK, UNK
     Dates: start: 20171211
  12. GABAPENTIN. [Concomitant]
     Active Substance: GABAPENTIN
     Indication: MUSCLE SPASTICITY
     Dosage: 300 EVERY 12 HOURS
     Route: 065
     Dates: start: 20161226, end: 20170519
  13. OMEPRAZOLE. [Concomitant]
     Active Substance: OMEPRAZOLE
     Indication: GASTRIC DISORDER
     Dosage: 20 EVERY 24 HOURS
     Route: 065
     Dates: start: 20170613
  14. METHYLPREDNISOLONE. [Concomitant]
     Active Substance: METHYLPREDNISOLONE
     Dosage: 1 G, QD
     Dates: start: 20180115, end: 20180118
  15. METOCLOPRAMIDE. [Concomitant]
     Active Substance: METOCLOPRAMIDE
     Dosage: 10 (NOS)
     Dates: start: 20180115, end: 20180118

REACTIONS (14)
  - Pruritus [Recovered/Resolved]
  - Urticaria [Recovered/Resolved]
  - Skin oedema [Recovered/Resolved]
  - Oedema peripheral [Not Recovered/Not Resolved]
  - Urinary tract infection [Recovered/Resolved]
  - Syncope [Recovered/Resolved]
  - Insomnia [Recovered/Resolved]
  - Disease recurrence [Recovering/Resolving]
  - Thyroid hormones increased [Not Recovered/Not Resolved]
  - Multiple sclerosis relapse [Unknown]
  - Headache [Unknown]
  - Skin reaction [Recovered/Resolved]
  - Vertigo [Recovered/Resolved]
  - Muscle spasticity [Recovering/Resolving]

NARRATIVE: CASE EVENT DATE: 20180116
